FAERS Safety Report 21594382 (Version 1)
Quarter: 2022Q4

REPORT INFORMATION
  Report Type: Other
  Country: US (occurrence: None)
  Receive Date: 20221115
  Receipt Date: 20221115
  Transmission Date: 20230113
  Serious: Yes (Hospitalization)
  Sender: FDA-Public Use
  Company Number: US-ROCHE-2874213

PATIENT
  Sex: Female

DRUGS (1)
  1. CELLCEPT [Suspect]
     Active Substance: MYCOPHENOLATE MOFETIL
     Indication: Pulmonary sarcoidosis
     Dosage: 2 TABLET 2 TIMES A DAY
     Route: 065

REACTIONS (2)
  - Off label use [Unknown]
  - Ill-defined disorder [Unknown]
